FAERS Safety Report 18312306 (Version 1)
Quarter: 2020Q3

REPORT INFORMATION
  Report Type: Spontaneous
  Country: CN (occurrence: CN)
  Receive Date: 20200925
  Receipt Date: 20200925
  Transmission Date: 20201103
  Serious: Yes (Death, Other)
  Sender: FDA-Public Use
  Company Number: CN-ASPEN-GLO2020CN009333

PATIENT
  Age: 18 Year
  Sex: Female
  Weight: 52 kg

DRUGS (3)
  1. CYCLOPHOSPHAMIDE. [Suspect]
     Active Substance: CYCLOPHOSPHAMIDE
     Indication: BONE MARROW CONDITIONING REGIMEN
     Dosage: 1. 8 G/M2/D, ?3, ?2 D
     Route: 065
  2. BUSULFAN. [Suspect]
     Active Substance: BUSULFAN
     Indication: BONE MARROW CONDITIONING REGIMEN
     Dosage: 0.8 MG/KG, 1 TIME/6H
     Route: 065
  3. IDARUBICIN [Suspect]
     Active Substance: IDARUBICIN
     Indication: BONE MARROW CONDITIONING REGIMEN
     Dosage: 8 MG /M2/D ? 3D
     Route: 065

REACTIONS (3)
  - Pneumonia [Fatal]
  - Interstitial lung disease [Unknown]
  - Product use in unapproved indication [Unknown]
